FAERS Safety Report 22593948 (Version 1)
Quarter: 2023Q2

REPORT INFORMATION
  Report Type: Spontaneous
  Country: US (occurrence: None)
  Receive Date: 20230612
  Receipt Date: 20230612
  Transmission Date: 20230722
  Serious: Yes (Disabling)
  Sender: FDA-Public Use
  Company Number: None

PATIENT
  Age: 80 Year
  Sex: Female
  Weight: 45.81 kg

DRUGS (11)
  1. BROMFENAC\MOXIFLOXACIN\PREDNISOLONE ACETATE [Suspect]
     Active Substance: BROMFENAC\MOXIFLOXACIN\PREDNISOLONE ACETATE
     Indication: Cataract operation
     Dosage: FREQUENCY : 3 TIMES A DAY;?
     Dates: start: 20230325, end: 20230424
  2. BROMFENAC\MOXIFLOXACIN\PREDNISOLONE ACETATE [Suspect]
     Active Substance: BROMFENAC\MOXIFLOXACIN\PREDNISOLONE ACETATE
     Indication: Prophylaxis
  3. CERTRUM VITAMINS FOR WOMEN 50+ [Concomitant]
  4. VITACOST ROYAL JELLY [Concomitant]
  5. LUTEIN [Concomitant]
     Active Substance: LUTEIN
  6. HYALURONIC ACID [Concomitant]
     Active Substance: HYALURONIC ACID
  7. VITAMIN D3 [Concomitant]
     Active Substance: CHOLECALCIFEROL
  8. VITAMIN B-COMPLEX [Concomitant]
     Active Substance: DEXPANTHENOL\NIACINAMIDE\PYRIDOXINE HYDROCHLORIDE\RIBOFLAVIN 5^-PHOSPHATE SODIUM\THIAMINE HYDROCHLOR
  9. FISH OIL [Concomitant]
     Active Substance: FISH OIL
  10. COLLAGEN [Concomitant]
     Active Substance: COLLAGEN
  11. GINKGO [Concomitant]
     Active Substance: GINKGO

REACTIONS (3)
  - Haematochezia [None]
  - Skin discolouration [None]
  - Haemorrhage subcutaneous [None]

NARRATIVE: CASE EVENT DATE: 20230301
